FAERS Safety Report 6115950-8 (Version None)
Quarter: 2009Q1

REPORT INFORMATION
  Report Type: 
  Country: None (occurrence: None)
  Receive Date: 20090314
  Receipt Date: 20081211
  Transmission Date: 20090719
  Serious: No
  Sender: FDA-Public Use
  Company Number: PR-ABBOTT-08P-131-0493275-00

PATIENT
  Sex: Female
  Weight: 52.21 kg

DRUGS (2)
  1. HUMIRA [Suspect]
     Indication: PSORIASIS
     Dosage: 1 PEN EVERY OTHER WEEK
     Route: 058
     Dates: start: 20080101, end: 20081101
  2. EYE SOLUTION [Concomitant]
     Indication: EYE DISORDER

REACTIONS (1)
  - PSORIASIS [None]
